FAERS Safety Report 6217839-2 (Version None)
Quarter: 2009Q2

REPORT INFORMATION
  Report Type: 
  Country: None (occurrence: None)
  Receive Date: 20090608
  Receipt Date: 20070906
  Transmission Date: 20091009
  Serious: Yes (Hospitalization)
  Sender: FDA-Public Use
  Company Number: US-ASTRAZENECA-2006UW25754

PATIENT
  Age: 38 Year
  Sex: Female
  Weight: 117 kg

DRUGS (19)
  1. SEROQUEL [Suspect]
     Indication: MENTAL DISORDER
     Dosage: 600 - 1200 MG
     Route: 048
     Dates: start: 20000101
  2. SEROQUEL [Suspect]
     Indication: DEPRESSION
     Dosage: 600 - 1200 MG
     Route: 048
     Dates: start: 20000101
  3. SEROQUEL [Suspect]
     Indication: BIPOLAR I DISORDER
     Dosage: 600 - 1200 MG
     Route: 048
     Dates: start: 20000101
  4. SEROQUEL [Suspect]
     Indication: SLEEP DISORDER
     Dosage: 600 - 1200 MG
     Route: 048
     Dates: start: 20000101
  5. SEROQUEL [Suspect]
     Dosage: 100 MG 3 AT BED TIME, 600 MG QHS
     Route: 048
     Dates: start: 20001226
  6. SEROQUEL [Suspect]
     Dosage: 100 MG 3 AT BED TIME, 600 MG QHS
     Route: 048
     Dates: start: 20001226
  7. SEROQUEL [Suspect]
     Dosage: 100 MG 3 AT BED TIME, 600 MG QHS
     Route: 048
     Dates: start: 20001226
  8. SEROQUEL [Suspect]
     Dosage: 100 MG 3 AT BED TIME, 600 MG QHS
     Route: 048
     Dates: start: 20001226
  9. SEROQUEL [Suspect]
     Dosage: 200 MG 1 TAB TWICE - 1200 MG AT BED TIME. FLUCTUATING
     Route: 048
     Dates: start: 20011227
  10. SEROQUEL [Suspect]
     Dosage: 200 MG 1 TAB TWICE - 1200 MG AT BED TIME. FLUCTUATING
     Route: 048
     Dates: start: 20011227
  11. SEROQUEL [Suspect]
     Dosage: 200 MG 1 TAB TWICE - 1200 MG AT BED TIME. FLUCTUATING
     Route: 048
     Dates: start: 20011227
  12. SEROQUEL [Suspect]
     Dosage: 200 MG 1 TAB TWICE - 1200 MG AT BED TIME. FLUCTUATING
     Route: 048
     Dates: start: 20011227
  13. ZYPREXA [Suspect]
     Route: 065
     Dates: start: 20010101, end: 20020101
  14. ABILIFY [Concomitant]
     Dates: start: 20040101
  15. CLOZARIL [Concomitant]
     Dates: start: 20060101
  16. GEODON [Concomitant]
     Dates: start: 20050101
  17. RISPERDAL [Concomitant]
     Dates: start: 19990101
  18. LANTUS [Concomitant]
     Dosage: 50 UNITS QHS - 100 UNITS QHS
     Route: 058
  19. NOVOLOG [Concomitant]
     Dosage: 14 UNITS BEFORE A MEAL - 30 UNITS PRIOR TO EACH MEAL
     Route: 058

REACTIONS (5)
  - BLOOD CHOLESTEROL INCREASED [None]
  - BLOOD TRIGLYCERIDES INCREASED [None]
  - DIABETES MELLITUS INADEQUATE CONTROL [None]
  - INSULIN RESISTANT DIABETES [None]
  - TYPE 1 DIABETES MELLITUS [None]
